FAERS Safety Report 11496299 (Version 3)
Quarter: 2016Q3

REPORT INFORMATION
  Report Type: Spontaneous
  Country: FR (occurrence: FR)
  Receive Date: 20150911
  Receipt Date: 20160816
  Transmission Date: 20161109
  Serious: Yes (Death, Other)
  Sender: FDA-Public Use
  Company Number: FR-JAZZ-2011-281

PATIENT
  Age: 65 Year
  Sex: Male
  Weight: 78 kg

DRUGS (12)
  1. MORPHINE SULFATE. [Suspect]
     Active Substance: MORPHINE SULFATE
     Indication: PAIN
     Dosage: 0.088 MG, QH
     Dates: start: 20110405, end: 20110407
  2. MORPHINE SULFATE. [Suspect]
     Active Substance: MORPHINE SULFATE
     Dosage: 0.188 MG, QH
     Dates: start: 20110419, end: 201105
  3. PRIALT [Suspect]
     Active Substance: ZICONOTIDE ACETATE
     Dosage: 0.04 UG, ONCE/HOUR
     Route: 037
     Dates: start: 20110408, end: 20110418
  4. PRIALT [Suspect]
     Active Substance: ZICONOTIDE ACETATE
     Dosage: 0.04 UG, ONCE/HOUR
     Route: 037
     Dates: start: 20110419, end: 20110429
  5. PRIALT [Suspect]
     Active Substance: ZICONOTIDE ACETATE
     Indication: PAIN
     Dosage: 0.04 UG, ONCE/HOUR
     Route: 037
     Dates: start: 20110405, end: 20110407
  6. MORPHINE SULFATE. [Suspect]
     Active Substance: MORPHINE SULFATE
     Indication: NEURALGIA
     Dosage: 0.05 MG, QH
     Dates: start: 20110401, end: 20110404
  7. NAROPEINE [Suspect]
     Active Substance: ROPIVACAINE HYDROCHLORIDE
     Indication: NEURALGIA
     Dosage: UNK MG, ONCE/HOUR
     Dates: end: 20110418
  8. MORPHINE SULFATE. [Concomitant]
     Active Substance: MORPHINE SULFATE
     Dosage: UNK
     Route: 048
  9. MORPHINE SULFATE. [Suspect]
     Active Substance: MORPHINE SULFATE
     Dosage: 0.18 MG, QH
     Dates: start: 20110411, end: 20110418
  10. PRIALT [Suspect]
     Active Substance: ZICONOTIDE ACETATE
     Indication: NEURALGIA
     Dosage: 0.02 ?G, QH
     Dates: start: 20110401, end: 20110404
  11. MORPHINE SULFATE. [Suspect]
     Active Substance: MORPHINE SULFATE
     Dosage: 0.148 MG, QH
     Dates: start: 20110408, end: 20110410
  12. NAROPEINE [Suspect]
     Active Substance: ROPIVACAINE HYDROCHLORIDE
     Indication: PAIN
     Dosage: UNK MG, ONCE/HOUR
     Dates: end: 201105

REACTIONS (9)
  - Hostility [Recovered/Resolved]
  - Aphasia [Recovered/Resolved]
  - Confusional state [Recovered/Resolved]
  - Vomiting [Unknown]
  - Agitation [Recovered/Resolved]
  - Nausea [Unknown]
  - Neoplasm progression [Fatal]
  - Arterial haemorrhage [Fatal]
  - Incorrect route of drug administration [Recovered/Resolved]

NARRATIVE: CASE EVENT DATE: 2011
